FAERS Safety Report 9715875 (Version 1)
Quarter: 2013Q4

REPORT INFORMATION
  Report Type: Spontaneous
  Country: US (occurrence: None)
  Receive Date: 20131126
  Receipt Date: 20131126
  Transmission Date: 20140711
  Serious: Yes (Disabling)
  Sender: FDA-Public Use
  Company Number: None

PATIENT
  Age: 63 Year
  Sex: Female
  Weight: 63.5 kg

DRUGS (2)
  1. VIIBRYD 10 MG, 20 MG , 40 MG FOREST PHARMACEUTICALS [Suspect]
     Indication: DEPRESSION
     Dosage: 10 MG/ 1 TABLET, ONCE DAILY
     Route: 048
     Dates: start: 20131028, end: 20131125
  2. VIIBRYD 10 MG, 20 MG , 40 MG FOREST PHARMACEUTICALS [Suspect]
     Indication: ANXIETY
     Dosage: 10 MG/ 1 TABLET, ONCE DAILY
     Route: 048
     Dates: start: 20131028, end: 20131125

REACTIONS (5)
  - Rash [None]
  - Pruritus [None]
  - Skin exfoliation [None]
  - Scratch [None]
  - Scar [None]
